FAERS Safety Report 7734037-1 (Version None)
Quarter: 2011Q3

REPORT INFORMATION
  Report Type: 
  Country: None (occurrence: None)
  Receive Date: 20110907
  Receipt Date: 20110727
  Transmission Date: 20111222
  Serious: No
  Sender: FDA-Public Use
  Company Number: US-BAYER-2011-068115

PATIENT
  Age: 74 Year
  Sex: Female

DRUGS (4)
  1. HYDROCHLORIC ACID [Concomitant]
  2. ALEVE (CAPLET) [Suspect]
     Dosage: UNK
     Route: 048
  3. VASOTEC [Concomitant]
  4. LIBRAX [Concomitant]

REACTIONS (1)
  - ABDOMINAL DISCOMFORT [None]
